FAERS Safety Report 9679459 (Version 1)
Quarter: 2013Q4

REPORT INFORMATION
  Report Type: Spontaneous
  Country: US (occurrence: US)
  Receive Date: 20131109
  Receipt Date: 20131109
  Transmission Date: 20140711
  Serious: No
  Sender: FDA-Public Use
  Company Number: US-SANOFI-AVENTIS-2013SA050040

PATIENT
  Age: 66 Year
  Sex: Male

DRUGS (1)
  1. ALLEGRA-D, 12 HR [Suspect]
     Indication: HYPERSENSITIVITY
     Route: 048
     Dates: start: 20130512, end: 20130512

REACTIONS (3)
  - Dysuria [Not Recovered/Not Resolved]
  - Feeling abnormal [Not Recovered/Not Resolved]
  - Micturition urgency [Not Recovered/Not Resolved]
